FAERS Safety Report 8735993 (Version 2)
Quarter: 2012Q4

REPORT INFORMATION
  Report Type: 
  Country: BR (occurrence: BR)
  Receive Date: 20120822
  Receipt Date: 20121101
  Transmission Date: 20130627
  Serious: Yes (Other)
  Sender: FDA-Public Use
  Company Number: BR-ASTRAZENECA-2012SE57580

PATIENT
  Age: 84 Year
  Sex: Male

DRUGS (1)
  1. CRESTOR [Suspect]
     Indication: ACUTE MYOCARDIAL INFARCTION
     Route: 048
     Dates: start: 2011

REACTIONS (1)
  - Infarction [Unknown]
